FAERS Safety Report 4451960-4 (Version None)
Quarter: 2004Q3

REPORT INFORMATION
  Report Type: 
  Country: None (occurrence: None)
  Receive Date: 20040915
  Receipt Date: 20040915
  Transmission Date: 20050211
  Serious: Yes (Life-Threatening, Hospitalization)
  Sender: FDA-Public Use
  Company Number: None

PATIENT
  Age: 84 Year
  Sex: Male
  Weight: 77.6 kg

DRUGS (2)
  1. CEFEPIME [Suspect]
  2. MELOXICAM 15 MG TAB [Suspect]

REACTIONS (1)
  - RENAL FAILURE ACUTE [None]
